FAERS Safety Report 4594088-5 (Version None)
Quarter: 2005Q1

REPORT INFORMATION
  Report Type: 
  Country: None (occurrence: None)
  Receive Date: 20050218
  Receipt Date: 20050214
  Transmission Date: 20050727
  Serious: Yes (Hospitalization)
  Sender: FDA-Public Use
  Company Number: GBWYE402407FEB05

PATIENT
  Age: 45 Year
  Sex: Male

DRUGS (3)
  1. EFFEXOR XR [Suspect]
     Indication: DEPRESSION
     Dosage: 150 MG 1X PER 1 DAY
     Route: 048
     Dates: start: 20040922, end: 20050123
  2. OMEPRAZOLE [Suspect]
  3. DIAZEPAM [Concomitant]

REACTIONS (4)
  - DUODENAL ULCER [None]
  - GASTRIC ULCER [None]
  - HAEMATEMESIS [None]
  - HAEMORRHAGE [None]
